FAERS Safety Report 23800163 (Version 1)
Quarter: 2024Q2

REPORT INFORMATION
  Report Type: Spontaneous
  Country: CN (occurrence: CN)
  Receive Date: 20240430
  Receipt Date: 20240430
  Transmission Date: 20240715
  Serious: Yes (Life-Threatening, Hospitalization)
  Sender: FDA-Public Use
  Company Number: CN-OTSUKA-2024_012277

PATIENT
  Age: 85 Year
  Sex: Male
  Weight: 58 kg

DRUGS (4)
  1. TOLVAPTAN [Suspect]
     Active Substance: TOLVAPTAN
     Indication: Cardiac failure
     Dosage: 15 MG, QD
     Route: 048
     Dates: start: 20240413, end: 20240416
  2. TOLVAPTAN [Suspect]
     Active Substance: TOLVAPTAN
     Dosage: 0.25 DF, QD
     Route: 048
     Dates: start: 20240424
  3. FUROSEMIDE [Suspect]
     Active Substance: FUROSEMIDE
     Indication: Polyuria
     Dosage: 100 MG
     Route: 065
     Dates: start: 20240413, end: 20240416
  4. TORSEMIDE [Suspect]
     Active Substance: TORSEMIDE
     Indication: Polyuria
     Dosage: 50 MG, QD
     Route: 065
     Dates: start: 20240413, end: 20240416

REACTIONS (1)
  - Hypernatraemia [Recovered/Resolved]

NARRATIVE: CASE EVENT DATE: 20240416
